FAERS Safety Report 6672674-6 (Version None)
Quarter: 2010Q2

REPORT INFORMATION
  Report Type: 
  Country: None (occurrence: None)
  Receive Date: 20100408
  Receipt Date: 20100331
  Transmission Date: 20101027
  Serious: Yes (Death, Other)
  Sender: FDA-Public Use
  Company Number: JP-BAYER-200812129BYL

PATIENT
  Age: 63 Year
  Sex: Female
  Weight: 46 kg

DRUGS (5)
  1. NEXAVAR [Suspect]
     Indication: RENAL CELL CARCINOMA
     Dosage: TOTAL DAILY DOSE: 800 MG  UNIT DOSE: 200 MG
     Route: 048
     Dates: start: 20080423, end: 20081104
  2. NEXAVAR [Suspect]
     Dosage: AS USED: 400 MG  UNIT DOSE: 200 MG
     Route: 048
     Dates: start: 20081105, end: 20090106
  3. NEXAVAR [Suspect]
     Dosage: UNIT DOSE: 200 MG
     Route: 048
     Dates: start: 20090107
  4. MEDICON [Concomitant]
     Route: 048
     Dates: start: 20090107, end: 20090303
  5. CODEINE SULFATE [Concomitant]
     Route: 048
     Dates: start: 20090107

REACTIONS (8)
  - DIARRHOEA [None]
  - GASTROENTERITIS RADIATION [None]
  - HAEMOPTYSIS [None]
  - HYPOPHOSPHATAEMIA [None]
  - MALIGNANT NEOPLASM PROGRESSION [None]
  - MELAENA [None]
  - PANCREATIC ENZYMES INCREASED [None]
  - RENAL CELL CARCINOMA [None]
